FAERS Safety Report 5061191-5 (Version None)
Quarter: 2006Q3

REPORT INFORMATION
  Report Type: 
  Country: None (occurrence: None)
  Receive Date: 20060719
  Receipt Date: 20060719
  Transmission Date: 20061208
  Serious: Yes (Hospitalization)
  Sender: FDA-Public Use
  Company Number: None

PATIENT
  Age: 57 Year
  Sex: Male
  Weight: 76.6579 kg

DRUGS (2)
  1. ROSIGLITAZONE [Suspect]
     Indication: DIABETES MELLITUS
     Dosage: 4 MG QD PO
     Route: 048
     Dates: start: 20060323, end: 20060610
  2. GLYBURIDE [Suspect]
     Dosage: 10MCG  BID PO
     Route: 048
     Dates: start: 20060323, end: 20060610

REACTIONS (3)
  - HYPOGLYCAEMIA [None]
  - INCORRECT DOSE ADMINISTERED [None]
  - RENAL FAILURE [None]
